FAERS Safety Report 10019522 (Version 1)
Quarter: 2014Q1

REPORT INFORMATION
  Report Type: Spontaneous
  Country: FR (occurrence: FR)
  Receive Date: 20140318
  Receipt Date: 20140318
  Transmission Date: 20141002
  Serious: Yes (Other)
  Sender: FDA-Public Use
  Company Number: PHHY2014FR031643

PATIENT
  Sex: Male

DRUGS (2)
  1. RITALINE [Suspect]
     Indication: ATTENTION DEFICIT/HYPERACTIVITY DISORDER
     Dosage: UNK
     Route: 048
     Dates: start: 201111, end: 201112
  2. QUASYM [Suspect]
     Indication: ATTENTION DEFICIT/HYPERACTIVITY DISORDER
     Dosage: UNK
     Route: 048
     Dates: start: 201201, end: 201202

REACTIONS (3)
  - Social avoidant behaviour [Recovered/Resolved]
  - Regressive behaviour [Recovered/Resolved]
  - Abnormal behaviour [Recovered/Resolved]
